FAERS Safety Report 5523845-3 (Version None)
Quarter: 2007Q4

REPORT INFORMATION
  Report Type: 
  Country: None (occurrence: None)
  Receive Date: 20071121
  Receipt Date: 20071113
  Transmission Date: 20080405
  Serious: Yes (Hospitalization, Other)
  Sender: FDA-Public Use
  Company Number: GB-ABBOTT-05P-167-0305354-00

PATIENT
  Sex: Male
  Weight: 75 kg

DRUGS (8)
  1. HUMIRA [Suspect]
     Indication: ANKYLOSING SPONDYLITIS
     Route: 058
     Dates: start: 20050310, end: 20050715
  2. PARACETAMOL [Suspect]
     Indication: DRUG USE FOR UNKNOWN INDICATION
  3. MELOXICAM [Concomitant]
     Indication: DRUG USE FOR UNKNOWN INDICATION
  4. AKOXIA [Concomitant]
     Indication: DRUG USE FOR UNKNOWN INDICATION
     Dates: start: 20051013
  5. ACCOXIN [Concomitant]
     Indication: ANKYLOSING SPONDYLITIS
     Route: 048
  6. PARACETAMOL [Concomitant]
     Indication: PAIN
  7. IBUPROFEN TABLETS [Concomitant]
     Indication: PAIN
  8. FLUOXETINE [Concomitant]
     Indication: DRUG USE FOR UNKNOWN INDICATION
     Dates: start: 20050901

REACTIONS (20)
  - ANKYLOSING SPONDYLITIS [None]
  - ARTHRALGIA [None]
  - BONE PAIN [None]
  - DEPRESSED MOOD [None]
  - DEPRESSION [None]
  - EMOTIONAL DISTRESS [None]
  - FEELING HOT [None]
  - GENERAL PHYSICAL HEALTH DETERIORATION [None]
  - JOINT RANGE OF MOTION DECREASED [None]
  - MALAISE [None]
  - MENTAL DISORDER [None]
  - MYALGIA [None]
  - NIGHT SWEATS [None]
  - OVERDOSE [None]
  - PAIN [None]
  - PELVIC PAIN [None]
  - SPINAL DISORDER [None]
  - SUICIDAL IDEATION [None]
  - SUICIDE ATTEMPT [None]
  - WITHDRAWAL SYNDROME [None]
